FAERS Safety Report 10914062 (Version 2)
Quarter: 2015Q2

REPORT INFORMATION
  Report Type: Spontaneous
  Country: US (occurrence: US)
  Receive Date: 20150313
  Receipt Date: 20150605
  Transmission Date: 20150821
  Serious: Yes (Hospitalization)
  Sender: FDA-Public Use
  Company Number: US-ASTELLAS-2015US007747

PATIENT
  Sex: Male

DRUGS (1)
  1. XTANDI [Suspect]
     Active Substance: ENZALUTAMIDE
     Indication: PROSTATE CANCER
     Dosage: 160 MG (4 CAPSULES), ONCE DAILY
     Route: 048
     Dates: start: 20150213

REACTIONS (3)
  - Hospitalisation [Unknown]
  - Fatigue [Unknown]
  - Nasopharyngitis [Unknown]
